FAERS Safety Report 10343496 (Version 1)
Quarter: 2014Q3

REPORT INFORMATION
  Report Type: Spontaneous
  Country: AU (occurrence: None)
  Receive Date: 20140723
  Receipt Date: 20140723
  Transmission Date: 20150326
  Serious: Yes (Hospitalization, Other)
  Sender: FDA-Public Use
  Company Number: IPC201407-000360

PATIENT
  Age: 77 Year
  Sex: Male
  Weight: 84 kg

DRUGS (14)
  1. SITAGLIPTIN [Concomitant]
     Active Substance: SITAGLIPTIN
  2. REBOXETINE [Concomitant]
     Active Substance: REBOXETINE
  3. MIRTAZAPINE. [Concomitant]
     Active Substance: MIRTAZAPINE
  4. GLICLAZIDE MR (GLICLAZIDE) (GLICLAZIDE) [Concomitant]
  5. FENTANYL. [Concomitant]
     Active Substance: FENTANYL
  6. METFORMIN HYDROCHLORIDE. [Suspect]
     Active Substance: METFORMIN HYDROCHLORIDE
     Indication: TYPE 2 DIABETES MELLITUS
  7. FERROUS FUMRATE [Concomitant]
  8. BETAHISTINE [Concomitant]
     Active Substance: BETAHISTINE
  9. RAMIPRIL. [Concomitant]
     Active Substance: RAMIPRIL
  10. PRAZOSIN [Concomitant]
     Active Substance: PRAZOSIN
  11. DILTIAZEM [Concomitant]
     Active Substance: DILTIAZEM
  12. DOMPERIDONE [Concomitant]
     Active Substance: DOMPERIDONE
  13. FOLIC ACID. [Concomitant]
     Active Substance: FOLIC ACID
  14. ATORVASTATIN [Concomitant]
     Active Substance: ATORVASTATIN

REACTIONS (4)
  - Orthostatic hypotension [None]
  - Lactic acidosis [None]
  - Nausea [None]
  - Vomiting [None]
